FAERS Safety Report 23266230 (Version 1)
Quarter: 2023Q4

REPORT INFORMATION
  Report Type: Spontaneous
  Country: AU (occurrence: AU)
  Receive Date: 20231206
  Receipt Date: 20231206
  Transmission Date: 20240110
  Serious: Yes (Other)
  Sender: FDA-Public Use
  Company Number: AU-MLMSERVICE-20231120-4665668-1

PATIENT
  Age: 53 Year
  Sex: Female

DRUGS (1)
  1. CISPLATIN [Suspect]
     Active Substance: CISPLATIN
     Indication: Squamous cell carcinoma of head and neck
     Dosage: 2 CYCLES, LAST CYCLE DOSE REDUCED

REACTIONS (2)
  - Myelosuppression [Unknown]
  - Neutropenic sepsis [Unknown]
